FAERS Safety Report 15037299 (Version 1)
Quarter: 2018Q2

REPORT INFORMATION
  Report Type: Report from Study
  Country: ES (occurrence: ES)
  Receive Date: 20180620
  Receipt Date: 20180620
  Transmission Date: 20180711
  Serious: Yes (Life-Threatening, Hospitalization)
  Sender: FDA-Public Use
  Company Number: ES-TEVA-2018-ES-908979

PATIENT
  Age: 7 Day
  Sex: Female
  Weight: .8 kg

DRUGS (1)
  1. IBUPROFENO (1769A) [Suspect]
     Active Substance: IBUPROFEN
     Indication: PATENT DUCTUS ARTERIOSUS
     Dosage: 20 MG/KG DAILY; 10 MG /KG DU EL D?A 1 Y 5 MG/KG DU LOS DIAS 2 Y 3
     Route: 042
     Dates: start: 20170626, end: 20170628

REACTIONS (3)
  - Pulmonary haemorrhage [Recovered/Resolved with Sequelae]
  - Thrombocytopenia [Recovered/Resolved]
  - Cerebral haemorrhage [Recovered/Resolved with Sequelae]

NARRATIVE: CASE EVENT DATE: 20170629
